FAERS Safety Report 7628451-2 (Version None)
Quarter: 2011Q3

REPORT INFORMATION
  Report Type: 
  Country: None (occurrence: None)
  Receive Date: 20110721
  Receipt Date: 20110721
  Transmission Date: 20111222
  Serious: Yes (Hospitalization)
  Sender: FDA-Public Use
  Company Number: None

PATIENT
  Sex: Female
  Weight: 79.2 kg

DRUGS (6)
  1. RITUXIMAB (MOAB C2B8 ANTI CD20, CHIMERIC) [Suspect]
     Dosage: 686 MG
  2. DOXORUBICIN HYDROCHLORIDE [Suspect]
     Dosage: 26.35 MG
  3. PREDNISONE [Suspect]
     Dosage: 1100 MG
  4. CYCLOPHOSPHAMIDE [Suspect]
     Dosage: 1976.4 MG
  5. VINCRISTINE SULFATE [Suspect]
     Dosage: .73 MG
  6. ETOPOSIDE [Suspect]
     Dosage: 131.76 MG

REACTIONS (7)
  - PYREXIA [None]
  - DYSPHAGIA [None]
  - OROPHARYNGEAL PAIN [None]
  - OESOPHAGITIS [None]
  - ANAEMIA [None]
  - NEUTROPENIA [None]
  - NECK PAIN [None]
